FAERS Safety Report 11684094 (Version 2)
Quarter: 2015Q4

REPORT INFORMATION
  Report Type: Spontaneous
  Country: JP (occurrence: JP)
  Receive Date: 20151029
  Receipt Date: 20151202
  Transmission Date: 20160304
  Serious: Yes (Other)
  Sender: FDA-Public Use
  Company Number: JP-JNJFOC-20151022056

PATIENT
  Age: 44 Year
  Sex: Male
  Weight: 59 kg

DRUGS (7)
  1. EPERISONE HYDROCHLORIDE [Suspect]
     Active Substance: EPERISONE HYDROCHLORIDE
     Indication: BACK PAIN
     Route: 048
     Dates: start: 20151021
  2. SALSOROITIN [Concomitant]
     Indication: BACK PAIN
     Route: 042
     Dates: start: 20151021, end: 20151021
  3. LEVOGLUTAMIDE W/SODIUM GUALENATE [Concomitant]
     Indication: PROPHYLAXIS
     Route: 048
     Dates: start: 20151021
  4. MEPIVACAINE HYDROCHLORIDE. [Concomitant]
     Active Substance: MEPIVACAINE HYDROCHLORIDE
     Indication: BACK PAIN
     Route: 008
     Dates: start: 20151021, end: 20151021
  5. TRAMCET [Suspect]
     Active Substance: ACETAMINOPHEN\TRAMADOL
     Indication: PAIN
     Route: 048
     Dates: start: 20151021, end: 20151022
  6. LOXONIN [Suspect]
     Active Substance: LOXOPROFEN SODIUM
     Indication: BACK PAIN
     Route: 048
     Dates: start: 20151021
  7. VITACAIN [Concomitant]
     Indication: BACK PAIN
     Route: 061
     Dates: start: 20151021, end: 20151021

REACTIONS (1)
  - Sudden hearing loss [Recovered/Resolved]

NARRATIVE: CASE EVENT DATE: 20151021
